FAERS Safety Report 5967779-9 (Version None)
Quarter: 2008Q4

REPORT INFORMATION
  Report Type: 
  Country: None (occurrence: None)
  Receive Date: 20081126
  Receipt Date: 20081114
  Transmission Date: 20090506
  Serious: Yes (Hospitalization)
  Sender: FDA-Public Use
  Company Number: JP-JNJFOC-20081104002

PATIENT
  Age: 80 Year
  Sex: Male

DRUGS (5)
  1. DUROTEP MT [Suspect]
     Indication: DRUG USE FOR UNKNOWN INDICATION
  2. AMINOLEBAN [Concomitant]
     Indication: HEPATIC FAILURE
  3. LIVACT [Concomitant]
     Route: 048
  4. LASIX [Concomitant]
  5. ALDACTONE [Concomitant]
     Route: 048

REACTIONS (2)
  - DELIRIUM [None]
  - WRONG TECHNIQUE IN DRUG USAGE PROCESS [None]
